FAERS Safety Report 8052092 (Version 2)
Quarter: 2013Q3

REPORT INFORMATION
  Report Type: Spontaneous
  Country: US (occurrence: US)
  Receive Date: 20110725
  Receipt Date: 20130802
  Transmission Date: 20140515
  Serious: No
  Sender: FDA-Public Use
  Company Number: US-BRISTOL-MYERS SQUIBB COMPANY-15426893

PATIENT
  Age: 76 Year
  Sex: Female
  Weight: 97.5 kg

DRUGS (7)
  1. COUMADIN [Suspect]
     Dosage: FOR 15 YEARS.
  2. DIGOXIN [Concomitant]
  3. TORSEMIDE [Concomitant]
  4. SPIRONOLACTONE [Concomitant]
  5. MULTIVITAMIN [Concomitant]
  6. CALCIUM [Concomitant]
  7. FOSINOPRIL SODIUM [Concomitant]

REACTIONS (2)
  - International normalised ratio fluctuation [Unknown]
  - Abscess oral [Unknown]
